FAERS Safety Report 8035676-3 (Version None)
Quarter: 2011Q4

REPORT INFORMATION
  Report Type: 
  Country: None (occurrence: None)
  Receive Date: 20111222
  Receipt Date: 20111219
  Transmission Date: 20120403
  Serious: Yes (Other)
  Sender: FDA-Public Use
  Company Number: 7095253

PATIENT
  Age: 54 Year
  Sex: Female

DRUGS (4)
  1. AMITRIPTYLIN (AMITRIPTYLINE) [Concomitant]
  2. PRAMIPEXOL  (PRAMIPEXOLE) [Concomitant]
  3. LEVOTHYROXINE SODIUM [Suspect]
     Indication: THYROIDECTOMY
     Dosage: 75 MCG, ORAL
     Route: 048
  4. TILIDIN (VALORON N) [Concomitant]

REACTIONS (5)
  - THYROID DISORDER [None]
  - SENSATION OF FOREIGN BODY [None]
  - DYSPHAGIA [None]
  - RESTLESSNESS [None]
  - ERYTHEMA [None]
